FAERS Safety Report 8241129-X (Version None)
Quarter: 2012Q1

REPORT INFORMATION
  Report Type: 
  Country: None (occurrence: None)
  Receive Date: 20120328
  Receipt Date: 20120320
  Transmission Date: 20120608
  Serious: Yes (Hospitalization)
  Sender: FDA-Public Use
  Company Number: FR-BRISTOL-MYERS SQUIBB COMPANY-16468308

PATIENT
  Age: 89 Year
  Sex: Female

DRUGS (10)
  1. ASPIRIN [Concomitant]
     Dosage: KARDEGIC 75 (LYSINE ACETYLSALICYLATE)UNITS NOS
  2. NEBIVOLOL HCL [Concomitant]
     Dosage: 5 UNITS NOS
  3. ACETAMINOPHEN [Concomitant]
  4. NITROGLYCERIN [Concomitant]
  5. ATHYMIL [Concomitant]
     Dosage: 1 DF:40UNITS NOS
  6. PERINDOPRIL ERBUMINE [Concomitant]
     Dosage: 1 DF:2 UNITS NOS
  7. ALENDRONATE SODIUM [Suspect]
     Dosage: 1DF:FOSAVANCE TABLET (ALENDRONIC ACID, COLECALCIFEROL) ONE TABLET
     Route: 048
     Dates: end: 20111214
  8. IMOVANE [Concomitant]
     Dosage: 7.5 UNITS NOS
  9. LASIX [Concomitant]
     Dosage: TEMERIT 40UNITS NOS
  10. COUMADIN [Suspect]
     Dosage: 1DF:COUMADINE 2 MG, SCORED TABLET (WARFARIN) ONE HALF TABLET DAILY
     Route: 048
     Dates: end: 20111214

REACTIONS (1)
  - ANAEMIA [None]
